FAERS Safety Report 9224103 (Version 1)
Quarter: 2013Q2

REPORT INFORMATION
  Report Type: Spontaneous
  Country: US (occurrence: None)
  Receive Date: 20130409
  Receipt Date: 20130409
  Transmission Date: 20140414
  Serious: Yes (Hospitalization)
  Sender: FDA-Public Use
  Company Number: None

PATIENT
  Age: 84 Year
  Sex: Male
  Weight: 57.4 kg

DRUGS (3)
  1. ASPIRIN [Suspect]
     Indication: CARDIOVASCULAR DISORDER
     Dosage: 325 MG EVERY DAY PO
     Route: 048
     Dates: start: 20081210
  2. ASPIRIN [Suspect]
     Indication: SURGERY
     Dosage: 325 MG EVERY DAY PO
     Route: 048
     Dates: start: 20081210
  3. VITAMIN E [Suspect]
     Indication: SUPPLEMENTATION THERAPY
     Dosage: 200 MG  PO
     Route: 048
     Dates: start: 20081210, end: 20130408

REACTIONS (8)
  - Constipation [None]
  - Haematochezia [None]
  - Road traffic accident [None]
  - Musculoskeletal chest pain [None]
  - Back pain [None]
  - Spinal compression fracture [None]
  - Gastrointestinal haemorrhage [None]
  - Gastric haemorrhage [None]
